FAERS Safety Report 5934440-6 (Version None)
Quarter: 2008Q4

REPORT INFORMATION
  Report Type: 
  Country: None (occurrence: None)
  Receive Date: 20081010
  Receipt Date: 20070923
  Transmission Date: 20090506
  Serious: Yes (Other)
  Sender: FDA-Public Use
  Company Number: 2007SP019318

PATIENT
  Sex: Female

DRUGS (1)
  1. TEMODAR [Suspect]
     Indication: GLIOMA
     Dosage: PO
     Route: 048

REACTIONS (1)
  - MYELODYSPLASTIC SYNDROME [None]
